FAERS Safety Report 5336844-1 (Version None)
Quarter: 2007Q2

REPORT INFORMATION
  Report Type: 
  Country: None (occurrence: None)
  Receive Date: 20070524
  Receipt Date: 20070524
  Transmission Date: 20071010
  Serious: No
  Sender: FDA-Public Use
  Company Number: None

PATIENT
  Age: 39 Year
  Sex: Male
  Weight: 149.687 kg

DRUGS (2)
  1. ALEVE [Suspect]
  2. CELEBREX [Suspect]

REACTIONS (1)
  - OEDEMA PERIPHERAL [None]
